FAERS Safety Report 6306127-1 (Version None)
Quarter: 2009Q3

REPORT INFORMATION
  Report Type: 
  Country: None (occurrence: None)
  Receive Date: 20090812
  Receipt Date: 20090804
  Transmission Date: 20100115
  Serious: Yes (Other)
  Sender: FDA-Public Use
  Company Number: JP-AVENTIS-200912133JP

PATIENT
  Age: 60 Year
  Sex: Female

DRUGS (2)
  1. LANTUS [Suspect]
     Indication: DIABETES MELLITUS
     Route: 058
     Dates: start: 20050101
  2. LANTUS [Suspect]
     Dosage: DOSE: 30 UNITS
     Route: 058
     Dates: end: 20090101

REACTIONS (1)
  - OVARIAN CANCER [None]
